FAERS Safety Report 8255190-X (Version None)
Quarter: 2012Q1

REPORT INFORMATION
  Report Type: 
  Country: None (occurrence: None)
  Receive Date: 20120322
  Receipt Date: 20120213
  Transmission Date: 20120608
  Serious: Yes (Death)
  Sender: FDA-Public Use
  Company Number: UTC-015541

PATIENT
  Age: 61 Year
  Sex: Female
  Weight: 105 kg

DRUGS (4)
  1. REVATIO [Concomitant]
  2. TYVASO [Suspect]
     Indication: PRODUCT USED FOR UNKNOWN INDICATION
     Dosage: 216 MCG (54 MCG, 4 IN 1 D) , INHALATION
     Route: 055
     Dates: start: 20110414, end: 20120209
  3. COUMADIN [Concomitant]
  4. TRACLEER [Concomitant]

REACTIONS (2)
  - PULMONARY ARTERIAL HYPERTENSION [None]
  - DISEASE PROGRESSION [None]
